FAERS Safety Report 5009415-4 (Version None)
Quarter: 2006Q2

REPORT INFORMATION
  Report Type: 
  Country: None (occurrence: None)
  Receive Date: 20060522
  Receipt Date: 20060511
  Transmission Date: 20061013
  Serious: Yes (Other)
  Sender: FDA-Public Use
  Company Number: 2006063156

PATIENT
  Age: 23 Year
  Sex: Female
  Weight: 61.2356 kg

DRUGS (2)
  1. DILANTIN [Suspect]
     Indication: CONVULSION
     Dosage: 800 MG (1 D),
     Dates: start: 20060312
  2. DEPAKOTE [Concomitant]

REACTIONS (7)
  - CONVULSION [None]
  - DRUG PRESCRIBING ERROR [None]
  - ECONOMIC PROBLEM [None]
  - FALL [None]
  - OVERDOSE [None]
  - TREATMENT NONCOMPLIANCE [None]
  - VOMITING [None]
